FAERS Safety Report 5553352-3 (Version None)
Quarter: 2007Q4

REPORT INFORMATION
  Report Type: 
  Country: None (occurrence: None)
  Receive Date: 20071211
  Receipt Date: 20071211
  Transmission Date: 20080405
  Serious: Yes (Other)
  Sender: FDA-Public Use
  Company Number: None

PATIENT
  Age: 41 Year
  Sex: Male
  Weight: 95.2554 kg

DRUGS (1)
  1. AMITRIPTLINE HCL [Suspect]
     Indication: DRUG DISPENSING ERROR
     Dosage: 100MGS.  ONCE  PO
     Route: 048
     Dates: start: 20071203, end: 20071207

REACTIONS (9)
  - BLOOD PRESSURE INCREASED [None]
  - DIZZINESS [None]
  - DRUG DISPENSING ERROR [None]
  - FATIGUE [None]
  - IMPAIRED DRIVING ABILITY [None]
  - MALAISE [None]
  - MEDICATION ERROR [None]
  - SOMNOLENCE [None]
  - WRONG DRUG ADMINISTERED [None]
